FAERS Safety Report 24784244 (Version 1)
Quarter: 2024Q4

REPORT INFORMATION
  Report Type: Spontaneous
  Country: US (occurrence: US)
  Receive Date: 20241227
  Receipt Date: 20241227
  Transmission Date: 20250115
  Serious: Yes (Death, Other)
  Sender: BAUSCH AND LOMB
  Company Number: US-BAUSCH-BL-2024-018657

PATIENT
  Age: 40 Year
  Sex: Female

DRUGS (3)
  1. BUPROPION [Suspect]
     Active Substance: BUPROPION
     Indication: Product used for unknown indication
     Dosage: INGESTION (66 TABS MISSING)
     Route: 048
  2. LORAZEPAM [Suspect]
     Active Substance: LORAZEPAM
     Indication: Product used for unknown indication
     Dosage: MULTIPLE DOSES
     Route: 065
  3. ALCOHOL [Suspect]
     Active Substance: ALCOHOL
     Indication: Product used for unknown indication
     Dosage: BEVERAGE (INGESTION),A BOTTLE OF BOURBON
     Route: 048

REACTIONS (2)
  - Completed suicide [Fatal]
  - Therapy partial responder [Unknown]
